FAERS Safety Report 9028447 (Version 1)
Quarter: 2013Q1

REPORT INFORMATION
  Report Type: Report from Study
  Country: US (occurrence: US)
  Receive Date: 20130124
  Receipt Date: 20130124
  Transmission Date: 20140127
  Serious: Yes (Hospitalization, Other)
  Sender: FDA-Public Use
  Company Number: US-ABBOTT-13P-163-1036954-00

PATIENT
  Sex: Female
  Weight: 69.92 kg

DRUGS (3)
  1. HUMIRA PEN [Suspect]
     Indication: PSORIATIC ARTHROPATHY
     Dates: start: 2007, end: 2009
  2. HUMIRA PEN [Suspect]
     Dates: start: 2009, end: 201109
  3. METHOTREXATE [Concomitant]
     Indication: PSORIATIC ARTHROPATHY

REACTIONS (7)
  - Adenomyosis [Recovered/Resolved]
  - Arthritis [Recovered/Resolved]
  - Osteoarthritis [Recovered/Resolved]
  - Chronic lymphocytic leukaemia [Not Recovered/Not Resolved]
  - Skin haemorrhage [Not Recovered/Not Resolved]
  - Skin fissures [Not Recovered/Not Resolved]
  - Fatigue [Not Recovered/Not Resolved]
